FAERS Safety Report 9259994 (Version 1)
Quarter: 2013Q2

REPORT INFORMATION
  Report Type: Spontaneous
  Country: US (occurrence: US)
  Receive Date: 20130429
  Receipt Date: 20130429
  Transmission Date: 20140414
  Serious: Yes (Hospitalization)
  Sender: FDA-Public Use
  Company Number: US-BAYER-2013-050812

PATIENT
  Age: 47 Year
  Sex: Female
  Weight: 118 kg

DRUGS (18)
  1. YAZ [Suspect]
     Indication: MENOPAUSE
     Dosage: UNK
  2. YAZ [Suspect]
     Indication: CONTRACEPTION
  3. YASMIN [Suspect]
  4. FLUOXETINE [Concomitant]
     Dosage: 40 MG, UNK
     Route: 048
  5. HYDROCODONE W/ACETAMINOPHEN [Concomitant]
     Dosage: 5-500 MG
     Route: 048
  6. HYDROXYZINE [Concomitant]
     Dosage: 50 MG, UNK
  7. HYDROCHLOROTHIAZIDE [Concomitant]
     Dosage: 25 MG, UNK
     Route: 048
  8. METFORMIN [Concomitant]
     Dosage: 1000 MG, UNK
     Route: 048
  9. GABAPENTIN [Concomitant]
     Dosage: 300 MG, UNK
     Route: 048
  10. CYCLOBENZAPRINE [Concomitant]
     Dosage: 10 MG, UNK
     Route: 048
  11. LOTREL [Concomitant]
     Dosage: 10-40 MG
     Route: 048
  12. EFFEXOR [Concomitant]
     Dosage: 75 MG, UNK
  13. SIMVASTATIN [Concomitant]
     Dosage: 20 MG, UNK
     Route: 048
  14. ZYRTEC [Concomitant]
     Dosage: 10 MG, UNK
     Route: 048
  15. FLUOXETIN [Concomitant]
     Dosage: 40 MG, UNK
  16. NEURONTIN [Concomitant]
  17. VICODIN [Concomitant]
  18. PROVERA [Concomitant]
     Dosage: 10 MG, UNK

REACTIONS (1)
  - Cerebrovascular accident [None]
